FAERS Safety Report 9848229 (Version 3)
Quarter: 2014Q2

REPORT INFORMATION
  Report Type: Spontaneous
  Country: DE (occurrence: DE)
  Receive Date: 20140128
  Receipt Date: 20140513
  Transmission Date: 20141212
  Serious: Yes (Other)
  Sender: FDA-Public Use
  Company Number: DE-JNJFOC-20140115554

PATIENT
  Age: 19 Year
  Sex: Female

DRUGS (1)
  1. DOLORMIN MIGRANE ZAPFCHEN [Suspect]
     Indication: HEADACHE
     Route: 054

REACTIONS (3)
  - Diarrhoea haemorrhagic [Recovered/Resolved]
  - Abdominal pain [Recovered/Resolved]
  - Anorectal discomfort [Recovered/Resolved]
